FAERS Safety Report 17349241 (Version 2)
Quarter: 2020Q3

REPORT INFORMATION
  Report Type: Spontaneous
  Country: US (occurrence: US)
  Receive Date: 20200130
  Receipt Date: 20200714
  Transmission Date: 20201102
  Serious: No
  Sender: FDA-Public Use
  Company Number: US-GW PHARMA-202001USGW00311

PATIENT

DRUGS (4)
  1. EPIDIOLEX [Suspect]
     Active Substance: CANNABIDIOL
     Indication: EPILEPSY
  2. EPIDIOLEX [Suspect]
     Active Substance: CANNABIDIOL
     Indication: FOCAL DYSCOGNITIVE SEIZURES
  3. EPIDIOLEX [Suspect]
     Active Substance: CANNABIDIOL
     Indication: EPILEPSY
     Dosage: 350 MILLIGRAM, BID
     Route: 048
     Dates: start: 20191219, end: 202002
  4. EPIDIOLEX [Suspect]
     Active Substance: CANNABIDIOL
     Indication: PARTIAL SEIZURES

REACTIONS (5)
  - Loss of personal independence in daily activities [Unknown]
  - Laziness [Unknown]
  - Fatigue [Unknown]
  - Product use in unapproved indication [Recovered/Resolved]
  - Apathy [Unknown]

NARRATIVE: CASE EVENT DATE: 20191219
